FAERS Safety Report 12491362 (Version 1)
Quarter: 2016Q2

REPORT INFORMATION
  Report Type: Spontaneous
  Country: US (occurrence: US)
  Receive Date: 20160623
  Receipt Date: 20160623
  Transmission Date: 20160815
  Serious: Yes (Hospitalization, Other)
  Sender: FDA-Public Use
  Company Number: US-ACCORD-041634

PATIENT
  Age: 48 Year
  Sex: Male

DRUGS (6)
  1. AMLODIPINE [Suspect]
     Active Substance: AMLODIPINE BESYLATE
  2. LISINOPRIL. [Suspect]
     Active Substance: LISINOPRIL
  3. CARVEDILOL/CARVEDILOL HYDROCHLODRIDE [Suspect]
     Active Substance: CARVEDILOL
  4. DOXAZOSIN [Suspect]
     Active Substance: DOXAZOSIN\DOXAZOSIN MESYLATE
  5. HYDRALAZINE [Suspect]
     Active Substance: HYDRALAZINE HYDROCHLORIDE
  6. HYDROCHLOROTHIAZIDE. [Suspect]
     Active Substance: HYDROCHLOROTHIAZIDE

REACTIONS (14)
  - Femoral artery dissection [None]
  - Peripheral ischaemia [None]
  - Shock [Unknown]
  - Acute kidney injury [Unknown]
  - Troponin I increased [Unknown]
  - Pulmonary oedema [Unknown]
  - Retroperitoneal haemorrhage [None]
  - Shock haemorrhagic [None]
  - Cardiomegaly [Unknown]
  - Blood lactic acid increased [Unknown]
  - Overdose [Unknown]
  - Hypotension [Recovering/Resolving]
  - Supraventricular tachycardia [None]
  - Iatrogenic injury [None]
